FAERS Safety Report 5238894-2 (Version None)
Quarter: 2007Q1

REPORT INFORMATION
  Report Type: 
  Country: None (occurrence: None)
  Receive Date: 20070215
  Receipt Date: 20070204
  Transmission Date: 20070707
  Serious: Yes (Other)
  Sender: FDA-Public Use
  Company Number: BR-PFIZER INC-2007010479

PATIENT
  Sex: Female

DRUGS (3)
  1. DEPO-PROVERA [Suspect]
     Indication: CONTRACEPTION
     Dates: start: 19980101, end: 19980101
  2. DEPO-PROVERA [Suspect]
     Dates: start: 20070107, end: 20070107
  3. MELOXICAM [Concomitant]
     Indication: BURSITIS
     Route: 048

REACTIONS (4)
  - HORMONE LEVEL ABNORMAL [None]
  - OVARIAN ATROPHY [None]
  - UTERINE ATROPHY [None]
  - VULVOVAGINAL DRYNESS [None]
